FAERS Safety Report 23334785 (Version 3)
Quarter: 2024Q1

REPORT INFORMATION
  Report Type: Spontaneous
  Country: JP (occurrence: JP)
  Receive Date: 20231224
  Receipt Date: 20240123
  Transmission Date: 20240409
  Serious: Yes (Other)
  Sender: FDA-Public Use
  Company Number: JP-ABBVIE-5552544

PATIENT
  Age: 60 Year
  Sex: Female

DRUGS (1)
  1. RINVOQ [Suspect]
     Active Substance: UPADACITINIB
     Indication: Product used for unknown indication
     Dosage: FORM STRENGTH: 15 MILLIGRAM
     Route: 048

REACTIONS (2)
  - Breast cancer female [Unknown]
  - Breast mass [Unknown]

NARRATIVE: CASE EVENT DATE: 20231218
